FAERS Safety Report 8904166 (Version 1)
Quarter: 2012Q4

REPORT INFORMATION
  Report Type: 
  Country: US (occurrence: US)
  Receive Date: 20121113
  Receipt Date: 20121113
  Transmission Date: 20130627
  Serious: No
  Sender: FDA-Public Use
  Company Number: US-ASTRAZENECA-2012SE83391

PATIENT
  Age: 29 Year
  Sex: Male

DRUGS (3)
  1. NEXIUM [Suspect]
     Route: 048
  2. FAMOTIDINE [Concomitant]
  3. TUMS [Concomitant]

REACTIONS (2)
  - Dyspepsia [Unknown]
  - Intentional drug misuse [Unknown]
